FAERS Safety Report 9330789 (Version 1)
Quarter: 2013Q2

REPORT INFORMATION
  Report Type: Spontaneous
  Country: US (occurrence: None)
  Receive Date: 20130604
  Receipt Date: 20130604
  Transmission Date: 20140414
  Serious: Yes (Other)
  Sender: FDA-Public Use
  Company Number: None

PATIENT
  Age: 43 Year
  Sex: Female
  Weight: 54.43 kg

DRUGS (1)
  1. NITRO FUR-MACRO [Suspect]
     Indication: URINARY TRACT INFECTION
     Dosage: 2 DAILY
     Route: 048
     Dates: start: 20130521, end: 20130529

REACTIONS (9)
  - Pruritus [None]
  - Burning sensation [None]
  - Urticaria [None]
  - Fatigue [None]
  - Pyrexia [None]
  - Pain [None]
  - Insomnia [None]
  - Tremor [None]
  - Asthenia [None]
